FAERS Safety Report 21720932 (Version 2)
Quarter: 2023Q1

REPORT INFORMATION
  Report Type: Other
  Country: US (occurrence: None)
  Receive Date: 20221213
  Receipt Date: 20230117
  Transmission Date: 20230417
  Serious: Yes (Other)
  Sender: FDA-Public Use
  Company Number: US-ROCHE-3236472

PATIENT
  Age: 59 Year
  Sex: Male

DRUGS (2)
  1. XELODA [Suspect]
     Active Substance: CAPECITABINE
     Indication: Colorectal cancer metastatic
     Dosage: TAKE 4 TABLETS BY MOUTH TWICE A DAY 2 WEEKS ON, 1 WEEK OFF OF A 21 DAY CYCLE. TAKE ALONG WITH
     Route: 048
  2. XELODA [Suspect]
     Active Substance: CAPECITABINE
     Dosage: TAKE 1 TABLET BY MOUTH TWICE A DAY 2 WEEKS ON, 1 WEEK(S) OFF OF A 21 DAY CYCLE. TAKE ALONG WITH 50
     Route: 048

REACTIONS (2)
  - Fall [Unknown]
  - Wrist fracture [Unknown]
